FAERS Safety Report 13162913 (Version 1)
Quarter: 2017Q1

REPORT INFORMATION
  Report Type: Spontaneous
  Country: US (occurrence: US)
  Receive Date: 20170130
  Receipt Date: 20170130
  Transmission Date: 20170428
  Serious: No
  Sender: FDA-Public Use
  Company Number: US-PFIZER INC-2017034205

PATIENT
  Age: 66 Year
  Sex: Female

DRUGS (7)
  1. OXYCONTIN [Suspect]
     Active Substance: OXYCODONE HYDROCHLORIDE
     Dosage: 10 MG, 2X/DAY
  2. LEVOTHYROXINE. [Concomitant]
     Active Substance: LEVOTHYROXINE
     Dosage: UNK
  3. ALLEGRA [Concomitant]
     Active Substance: FEXOFENADINE HYDROCHLORIDE
     Dosage: UNK
  4. PERCOCET [Suspect]
     Active Substance: ACETAMINOPHEN\OXYCODONE HYDROCHLORIDE
     Indication: BREAKTHROUGH PAIN
     Dosage: UNK UNK, AS NEEDED ([OXYCODONE HYDROCHLORIDE: 10 MG]/[PARACETAMOL: 325 MG], TID)
  5. CROMOLYN [Concomitant]
     Active Substance: CROMOLYN
     Indication: MAST CELL ACTIVATION SYNDROME
     Dosage: UNK
  6. LYRICA [Suspect]
     Active Substance: PREGABALIN
     Dosage: 50 MG, 3X/DAY
     Route: 048
  7. FAMOTIDINE. [Concomitant]
     Active Substance: FAMOTIDINE
     Dosage: UNK

REACTIONS (8)
  - Abdominal pain upper [Unknown]
  - Fatigue [Unknown]
  - Drug effect incomplete [Unknown]
  - Activities of daily living impaired [Unknown]
  - Headache [Unknown]
  - Disturbance in attention [Unknown]
  - Dry mouth [Unknown]
  - Constipation [Unknown]
